FAERS Safety Report 5472236-2 (Version None)
Quarter: 2007Q3

REPORT INFORMATION
  Report Type: 
  Country: None (occurrence: None)
  Receive Date: 20070926
  Receipt Date: 20070913
  Transmission Date: 20080115
  Serious: Yes (Death)
  Sender: FDA-Public Use
  Company Number: 2007331325

PATIENT
  Age: 1 Day
  Sex: Male
  Weight: 3.64 kg

DRUGS (5)
  1. DIPHENHYDRAMINE HCL [Suspect]
     Dosage: UNSPECIFIED (25 MG), PLACENTAL
  2. ALPRAZOLAM [Suspect]
     Dosage: UNSPECIFIED, PLACENTAL
  3. ZOLPIDEM TARTRATE [Suspect]
     Dosage: UNSPECIFIED (10 MG), PLACENTAL
  4. FLUOXETINE [Suspect]
     Dosage: UNSPECIFIED, PLACENTAL
  5. CAFFEINE CITRATE [Suspect]
     Dosage: UNSPECIFIED, PLACENTAL

REACTIONS (3)
  - DRUG EXPOSURE DURING PREGNANCY [None]
  - NEONATAL ASPIRATION [None]
  - NEONATAL RESPIRATORY ARREST [None]
